FAERS Safety Report 8806886 (Version 1)
Quarter: 2012Q4

REPORT INFORMATION
  Report Type: 
  Country: US (occurrence: US)
  Receive Date: 20120925
  Receipt Date: 20120925
  Transmission Date: 20130627
  Serious: Yes (Death)
  Sender: FDA-Public Use
  Company Number: US-ROCHE-1125920

PATIENT
  Sex: Female

DRUGS (3)
  1. AVASTIN [Suspect]
     Indication: BREAST CANCER FEMALE
     Route: 065
     Dates: start: 200511, end: 200512
  2. TAXOL [Concomitant]
     Route: 065
     Dates: start: 200312, end: 200402
  3. TAXOL [Concomitant]
     Route: 065
     Dates: start: 200511, end: 200512

REACTIONS (4)
  - Death [Fatal]
  - Disease progression [Unknown]
  - Pain [Unknown]
  - Malaise [Unknown]
